FAERS Safety Report 5432810-6 (Version None)
Quarter: 2007Q3

REPORT INFORMATION
  Report Type: 
  Country: None (occurrence: None)
  Receive Date: 20070831
  Receipt Date: 20070711
  Transmission Date: 20080115
  Serious: No
  Sender: FDA-Public Use
  Company Number: A0662694A

PATIENT
  Age: 48 Year
  Sex: Female

DRUGS (3)
  1. ALLI [Suspect]
     Dates: start: 20070703
  2. LIPITOR [Concomitant]
  3. DIOVAN HCT [Concomitant]

REACTIONS (3)
  - FEELING ABNORMAL [None]
  - MICTURITION FREQUENCY DECREASED [None]
  - URINE ODOUR ABNORMAL [None]
